FAERS Safety Report 5107471-6 (Version None)
Quarter: 2006Q3

REPORT INFORMATION
  Report Type: 
  Country: None (occurrence: None)
  Receive Date: 20060913
  Receipt Date: 20060913
  Transmission Date: 20061208
  Serious: No
  Sender: FDA-Public Use
  Company Number: None

PATIENT

DRUGS (2)
  1. CADUET [Suspect]
     Indication: BLOOD CHOLESTEROL INCREASED
     Dosage: 1 TABLET AT BEDTIME PO
     Route: 048
  2. CADUET [Suspect]
     Indication: HYPERTENSION
     Dosage: 1 TABLET AT BEDTIME PO
     Route: 048

REACTIONS (1)
  - MEDICATION ERROR [None]
